FAERS Safety Report 6101067-5 (Version None)
Quarter: 2009Q1

REPORT INFORMATION
  Report Type: 
  Country: None (occurrence: None)
  Receive Date: 20090304
  Receipt Date: 20090223
  Transmission Date: 20090719
  Serious: Yes (Hospitalization)
  Sender: FDA-Public Use
  Company Number: US-BRISTOL-MYERS SQUIBB COMPANY-14527030

PATIENT
  Age: 63 Year
  Sex: Female

DRUGS (1)
  1. CETUXIMAB [Suspect]
     Indication: HEAD AND NECK CANCER
     Dosage: INITIAL INFUSION ON 12-DEC-2008. SECOND AND MOST RECENT INFUSION: 23-JAN-2009
     Route: 042
     Dates: start: 20081212, end: 20090123

REACTIONS (4)
  - HAEMOGLOBIN [None]
  - HYPERCALCAEMIA [None]
  - HYPOKALAEMIA [None]
  - LYMPHOPENIA [None]
